FAERS Safety Report 9518277 (Version 1)
Quarter: 2013Q1

REPORT INFORMATION
  Report Type: Spontaneous
  Country: US (occurrence: None)
  Receive Date: 20130305
  Receipt Date: 20130305
  Transmission Date: 20140127
  Serious: Yes (Hospitalization, Other)
  Sender: FDA-Public Use
  Company Number: 163-21880-12071667

PATIENT
  Age: 71 Year
  Sex: Male

DRUGS (5)
  1. REVLIMID (LENALIDOMIDE) (25 MILLIGRAM, CAPSULES) [Suspect]
     Indication: PLASMA CELL MYELOMA
     Dosage: 25 MG, 21 IN 28 D, PO
     Route: 048
     Dates: start: 20120105
  2. DEXAMETHASONE (DEXAMETHASONE) (UNKNOWN) [Concomitant]
  3. ZOMETA (ZOLEDRONIC ACID) (UNKNOWN) [Concomitant]
  4. DOCUSATE (DOCUSATE) (UNKNOWN) [Concomitant]
  5. MILK OF MAGNESIA (MAGNESIUM HYDROXIDE) (UNKNOWN) [Concomitant]

REACTIONS (11)
  - Thrombosis [None]
  - Constipation [None]
  - Blood glucose increased [None]
  - Insomnia [None]
  - Erythema [None]
  - Platelet count decreased [None]
  - Rash [None]
  - Chills [None]
  - Diarrhoea [None]
  - Drug dose omission [None]
  - Platelet disorder [None]
